FAERS Safety Report 9459710 (Version 1)
Quarter: 2013Q3

REPORT INFORMATION
  Report Type: Spontaneous
  Country: US (occurrence: US)
  Receive Date: 20130815
  Receipt Date: 20130815
  Transmission Date: 20140515
  Serious: No
  Sender: FDA-Public Use
  Company Number: US-BAYER-2013-098605

PATIENT
  Age: 74 Year
  Sex: Female
  Weight: 75 kg

DRUGS (3)
  1. ALEVE CAPLET [Suspect]
     Dosage: 2 DF, QD
     Route: 048
  2. BAYER ASPIRIN REGIMEN ADULT LOW STRENGTH [Concomitant]
     Dosage: 1 DF, QD
     Route: 048
  3. DILTIAZEM [Concomitant]

REACTIONS (2)
  - Incorrect drug administration duration [None]
  - Local swelling [Not Recovered/Not Resolved]
